FAERS Safety Report 9261465 (Version 1)
Quarter: 2013Q2

REPORT INFORMATION
  Report Type: Spontaneous
  Country: CN (occurrence: CN)
  Receive Date: 20130429
  Receipt Date: 20130429
  Transmission Date: 20140414
  Serious: Yes (Death)
  Sender: FDA-Public Use
  Company Number: CN-BAYER-2013-052192

PATIENT
  Sex: Female
  Weight: 76 kg

DRUGS (12)
  1. ACETYLSALICYLIC ACID({=100 MG) [Suspect]
     Indication: HYPERTENSIVE HEART DISEASE
     Dosage: 0.1 G, QD
     Route: 048
     Dates: start: 20120107, end: 20120118
  2. FUROSEMIDE [Suspect]
     Indication: HYPERTENSIVE HEART DISEASE
     Dosage: 20 MG, QD
     Route: 048
     Dates: start: 20120107, end: 20120118
  3. CLINDAMYCIN PHOSPHATE [Suspect]
     Indication: BRONCHITIS
     Dosage: 0.1 G, BID
     Route: 042
     Dates: start: 20120107, end: 20120118
  4. IRBESARTAN [Concomitant]
     Indication: HYPERTENSION
     Dosage: 0.1 G, QD
     Route: 048
     Dates: start: 20120107, end: 20120118
  5. NITROGLYCERIN [Concomitant]
     Indication: HYPERTENSION
     Dosage: 5 MG, QD
     Route: 042
     Dates: start: 20100112, end: 20100118
  6. BROMHEXINE HYDROCHLORIDE [Concomitant]
     Indication: BRONCHITIS
     Dosage: 16 MG, TID
     Route: 048
     Dates: start: 20100107, end: 20100118
  7. GLICLAZIDE [Concomitant]
     Indication: DIABETES MELLITUS
     Dosage: 80 MG, BID
     Route: 048
     Dates: start: 20120108, end: 20120118
  8. PRAVASTATIN SODIUM [Concomitant]
     Indication: DIABETES MELLITUS
     Dosage: 20 MG, QD
     Route: 048
     Dates: start: 20120108, end: 20120118
  9. AMLODIPINE [Concomitant]
     Indication: HYPERTENSION
     Dosage: 5 MG, QD
     Route: 048
     Dates: start: 20120107, end: 20120118
  10. CEFOPERAZONE SODIUM [Concomitant]
     Indication: BRONCHITIS
     Dosage: 2 G, BID
     Route: 042
     Dates: start: 20120107, end: 20120117
  11. SPIRONOLACTONE [Concomitant]
     Indication: HYPERLIPIDAEMIA
     Dosage: 20 MG, QD
     Route: 048
     Dates: start: 20120107, end: 20120118
  12. HUMAN INSULIN [Concomitant]
     Indication: DIABETES MELLITUS
     Dosage: 4 U, TID
     Route: 042
     Dates: start: 20120111, end: 20120118

REACTIONS (2)
  - Asthma [Fatal]
  - Renal failure acute [Fatal]
